FAERS Safety Report 8986101 (Version 1)
Quarter: 2012Q4

REPORT INFORMATION
  Report Type: Spontaneous
  Country: US (occurrence: None)
  Receive Date: 20121219
  Receipt Date: 20121219
  Transmission Date: 20130627
  Serious: No
  Sender: FDA-Public Use
  Company Number: None

PATIENT
  Age: 29 Year
  Sex: Female
  Weight: 81.8 kg

DRUGS (1)
  1. COMPLERA [Suspect]
     Indication: HIV INFECTION
     Route: 048
     Dates: start: 20120626, end: 20120810

REACTIONS (11)
  - Nausea [None]
  - Vomiting [None]
  - Diarrhoea [None]
  - Abnormal faeces [None]
  - Fatigue [None]
  - Muscular weakness [None]
  - Depressed mood [None]
  - Alopecia [None]
  - Dysuria [None]
  - Menorrhagia [None]
  - Polymenorrhoea [None]
